FAERS Safety Report 8906697 (Version 4)
Quarter: 2013Q1

REPORT INFORMATION
  Report Type: Spontaneous
  Country: US (occurrence: US)
  Receive Date: 20121114
  Receipt Date: 20130125
  Transmission Date: 20140127
  Serious: Yes (Death, Hospitalization, Other)
  Sender: FDA-Public Use
  Company Number: US-ACTELION-A-NJ2012-74388

PATIENT
  Age: 64 Year
  Sex: Female

DRUGS (4)
  1. TRACLEER [Suspect]
     Indication: PULMONARY ARTERIAL HYPERTENSION
     Dosage: UNK
     Route: 048
     Dates: start: 20121005, end: 2012
  2. TRACLEER [Suspect]
     Dosage: UNK
     Route: 048
     Dates: start: 2012
  3. SILDENAFIL [Concomitant]
  4. COUMADIN [Concomitant]

REACTIONS (9)
  - Death [Fatal]
  - Pulmonary oedema [Recovering/Resolving]
  - Pulmonary arterial hypertension [Recovering/Resolving]
  - Dyspnoea [Recovering/Resolving]
  - Acute respiratory failure [Recovering/Resolving]
  - Anaemia [Recovering/Resolving]
  - Transfusion [Recovering/Resolving]
  - Fluid retention [Unknown]
  - Swelling [Unknown]
